FAERS Safety Report 9112548 (Version 3)
Quarter: 2013Q2

REPORT INFORMATION
  Report Type: Spontaneous
  Country: US (occurrence: US)
  Receive Date: 20130211
  Receipt Date: 20130528
  Transmission Date: 20140414
  Serious: No
  Sender: FDA-Public Use
  Company Number: US-B.I. PHARMACEUTICALS,INC./RIDGEFIELD-2013-BI-03871BP

PATIENT
  Age: 54 Year
  Sex: Female
  Weight: 39.01 kg

DRUGS (1)
  1. COMBIVENT [Suspect]
     Indication: CHRONIC OBSTRUCTIVE PULMONARY DISEASE
     Route: 055

REACTIONS (5)
  - Feeling jittery [Not Recovered/Not Resolved]
  - Influenza like illness [Recovered/Resolved]
  - Gallbladder disorder [Not Recovered/Not Resolved]
  - Vitamin D deficiency [Not Recovered/Not Resolved]
  - Musculoskeletal pain [Not Recovered/Not Resolved]
